FAERS Safety Report 13840721 (Version 2)
Quarter: 2017Q3

REPORT INFORMATION
  Report Type: Spontaneous
  Country: DE (occurrence: DE)
  Receive Date: 20170807
  Receipt Date: 20170811
  Transmission Date: 20171127
  Serious: Yes (Other)
  Sender: FDA-Public Use
  Company Number: DE-BRISTOL-MYERS SQUIBB COMPANY-BMS-2017-070661

PATIENT
  Age: 71 Year
  Sex: Female

DRUGS (1)
  1. YERVOY [Suspect]
     Active Substance: IPILIMUMAB
     Indication: MALIGNANT MELANOMA
     Dosage: 4 DOSES , Q3WK
     Route: 065
     Dates: start: 20141030, end: 20150108

REACTIONS (9)
  - Hepatic failure [Unknown]
  - Coagulation factor deficiency [Unknown]
  - Urea cycle disorder [Unknown]
  - Depression [Unknown]
  - Blood osmolarity decreased [Unknown]
  - Haemorrhagic anaemia [Unknown]
  - Malignant neoplasm progression [Unknown]
  - Hyponatraemia [Unknown]
  - Ileus [Unknown]

NARRATIVE: CASE EVENT DATE: 201503
